FAERS Safety Report 9904416 (Version 2)
Quarter: 2014Q1

REPORT INFORMATION
  Report Type: Spontaneous
  Country: US (occurrence: US)
  Receive Date: 20140218
  Receipt Date: 20140218
  Transmission Date: 20141002
  Serious: No
  Sender: FDA-Public Use
  Company Number: US-HORIZON-PRE-0125-2013

PATIENT
  Age: 16 Year
  Sex: Male

DRUGS (2)
  1. RAYOS [Suspect]
     Indication: IMMUNOSUPPRESSION
     Dosage: QD:24 MG /25 OCT 2013, REDUCED TO 16 MG ON 05 NOV 2013, 22 NOV 2013 TO 10 MG, DISCONTINUE IN JAN 14
     Dates: start: 20131025
  2. AZITHROMYCIN [Concomitant]
     Dosage: 500 MG
     Dates: start: 20130825, end: 201311

REACTIONS (2)
  - Dyspnoea [Not Recovered/Not Resolved]
  - Abdominal pain [Not Recovered/Not Resolved]
